FAERS Safety Report 5131870-X (Version None)
Quarter: 2006Q4

REPORT INFORMATION
  Report Type: 
  Country: None (occurrence: None)
  Receive Date: 20061016
  Receipt Date: 20061005
  Transmission Date: 20070319
  Serious: Yes (Other)
  Sender: FDA-Public Use
  Company Number: US-2006-006373

PATIENT
  Age: 63 Year
  Sex: Female
  Weight: 68 kg

DRUGS (8)
  1. CLIMARA [Suspect]
     Indication: MENOPAUSAL SYMPTOMS
     Dosage: TRANSDERMAL
     Route: 062
     Dates: start: 19950101, end: 19980101
  2. ESTRADERM [Suspect]
     Indication: MENOPAUSAL SYMPTOMS
     Dates: start: 19940101, end: 19950101
  3. PROVERA [Suspect]
     Indication: MENOPAUSAL SYMPTOMS
     Dates: start: 19940101, end: 19980101
  4. PREMPRO [Suspect]
     Indication: MENOPAUSAL SYMPTOMS
     Dates: start: 19980101, end: 20020101
  5. SYNTHROID [Concomitant]
  6. CLONIDINE [Concomitant]
  7. COZAAR [Concomitant]
  8. ASPIRIN [Concomitant]

REACTIONS (3)
  - BREAST CANCER IN SITU [None]
  - OESTROGEN RECEPTOR ASSAY POSITIVE [None]
  - PROGESTERONE RECEPTOR ASSAY POSITIVE [None]
